FAERS Safety Report 10847303 (Version 3)
Quarter: 2015Q1

REPORT INFORMATION
  Report Type: Spontaneous
  Country: US (occurrence: US)
  Receive Date: 20150220
  Receipt Date: 20150312
  Transmission Date: 20150721
  Serious: Yes (Life-Threatening, Hospitalization, Other)
  Sender: FDA-Public Use
  Company Number: US-PFIZER INC-2015062330

PATIENT
  Age: 72 Year
  Sex: Male
  Weight: 110 kg

DRUGS (3)
  1. LEVAQUIN [Interacting]
     Active Substance: LEVOFLOXACIN
     Indication: COUGH
     Dosage: 500 MG, FOR 5 DAYS
  2. COUMADIN [Interacting]
     Active Substance: WARFARIN SODIUM
     Indication: ANTICOAGULANT THERAPY
     Dosage: 10 MG/12.5 MG ALTERNATELY
  3. XALKORI [Suspect]
     Active Substance: CRIZOTINIB
     Indication: LUNG ADENOCARCINOMA
     Dosage: 250 MG, 2X/DAY
     Route: 048
     Dates: start: 20140313, end: 20140504

REACTIONS (7)
  - Prothrombin time prolonged [Unknown]
  - Drug interaction [Unknown]
  - International normalised ratio abnormal [Recovered/Resolved]
  - Ear haemorrhage [Recovering/Resolving]
  - Drug-induced liver injury [Recovered/Resolved]
  - Haematuria [Recovering/Resolving]
  - Haematoma [Recovered/Resolved]
